FAERS Safety Report 20235405 (Version 2)
Quarter: 2022Q1

REPORT INFORMATION
  Report Type: Report from Study
  Country: GR (occurrence: GR)
  Receive Date: 20211228
  Receipt Date: 20220131
  Transmission Date: 20220424
  Serious: Yes (Death, Hospitalization)
  Sender: FDA-Public Use
  Company Number: GR-ABBVIE-21K-066-4212813-00

PATIENT
  Sex: Male

DRUGS (5)
  1. CARBIDOPA\LEVODOPA [Suspect]
     Active Substance: CARBIDOPA\LEVODOPA
     Indication: Parkinson^s disease
     Dosage: MORNING DOSE: 6.9 ML; CONTINUOUS RATE: 1.2 ML/H; EXTRA DOSE: 1.5 ML(2-3/DAY)
     Route: 050
     Dates: start: 20170110, end: 20211223
  2. CARBIDOPA\LEVODOPA [Suspect]
     Active Substance: CARBIDOPA\LEVODOPA
     Dosage: MORNING DOSE: 6.9 ML; CONTINUOUS RATE: 1.2 ML/H; EXTRA DOSE: 1.5 ML(2-3/DAY)
     Route: 050
     Dates: start: 20211224
  3. NEUPRO [Concomitant]
     Active Substance: ROTIGOTINE
     Indication: Product used for unknown indication
     Route: 048
  4. SAGILIA [Concomitant]
     Indication: Product used for unknown indication
     Route: 048
  5. SOLIFENACIN\TAMSULOSIN [Concomitant]
     Active Substance: SOLIFENACIN\TAMSULOSIN
     Indication: Product used for unknown indication
     Dosage: (6.0+0.4)MG
     Route: 048
     Dates: start: 20190523

REACTIONS (2)
  - Atrial fibrillation [Fatal]
  - Respiratory tract infection [Not Recovered/Not Resolved]
